FAERS Safety Report 14185114 (Version 1)
Quarter: 2017Q4

REPORT INFORMATION
  Report Type: Spontaneous
  Country: US (occurrence: US)
  Receive Date: 20171111
  Receipt Date: 20171111
  Transmission Date: 20180321
  Serious: Yes (Disabling, Other)
  Sender: FDA-Public Use
  Company Number: None

PATIENT
  Age: 64 Year
  Sex: Male
  Weight: 87.75 kg

DRUGS (8)
  1. METAPROLOL [Concomitant]
     Active Substance: METOPROLOL
  2. CIPROFLOXACIN. [Suspect]
     Active Substance: CIPROFLOXACIN
     Indication: PROSTATITIS
     Dosage: ?          QUANTITY:1 TABLET(S);?
     Route: 048
     Dates: start: 20171029, end: 20171029
  3. MULTI-VITAMINS [Concomitant]
  4. SAW PALMETTO WITH PYGEUM [Concomitant]
  5. VITAMIN D3 [Concomitant]
     Active Substance: CHOLECALCIFEROL
  6. MAGNESIUM [Concomitant]
     Active Substance: MAGNESIUM
  7. OMEGA 3 [Concomitant]
     Active Substance: OMEGA-3 FATTY ACIDS
  8. VITAMIN C [Concomitant]
     Active Substance: ASCORBIC ACID

REACTIONS (9)
  - Ocular discomfort [None]
  - Muscular weakness [None]
  - Musculoskeletal pain [None]
  - Joint crepitation [None]
  - Arthropathy [None]
  - Connective tissue disorder [None]
  - Neuropathy peripheral [None]
  - Immune system disorder [None]
  - Tendon discomfort [None]

NARRATIVE: CASE EVENT DATE: 20171029
